FAERS Safety Report 4310819-3 (Version None)
Quarter: 2004Q1

REPORT INFORMATION
  Report Type: 
  Country: None (occurrence: None)
  Receive Date: 20040302
  Receipt Date: 20040217
  Transmission Date: 20041129
  Serious: Yes (Life-Threatening)
  Sender: FDA-Public Use
  Company Number: 2004AP00679

PATIENT
  Age: 64 Year
  Sex: Male

DRUGS (3)
  1. DIPRIVAN [Suspect]
     Indication: INDUCTION OF ANAESTHESIA
     Dosage: 1173 MG DAILY IV
     Route: 042
     Dates: start: 20040206, end: 20040206
  2. DIPRIVAN [Suspect]
     Indication: MAINTENANCE OF ANAESTHESIA
     Dosage: 1173 MG DAILY IV
     Route: 042
     Dates: start: 20040206, end: 20040206
  3. XYLOCAINE [Concomitant]

REACTIONS (2)
  - LOSS OF CONSCIOUSNESS [None]
  - RESPIRATORY ARREST [None]
